FAERS Safety Report 21796945 (Version 4)
Quarter: 2023Q1

REPORT INFORMATION
  Report Type: Spontaneous
  Country: US (occurrence: US)
  Receive Date: 20221230
  Receipt Date: 20230322
  Transmission Date: 20230417
  Serious: No
  Sender: FDA-Public Use
  Company Number: US-BRISTOL-MYERS SQUIBB COMPANY-2022-160542

PATIENT
  Age: 63 Year
  Sex: Female
  Weight: 67.13 kg

DRUGS (1)
  1. REVLIMID [Suspect]
     Active Substance: LENALIDOMIDE
     Indication: Plasma cell myeloma
     Dosage: DOSE: 20MG CAPSULES FREQ: 21 DAYS ON AND 7 DAYS OFF, ORALLY
     Route: 048
     Dates: start: 202210

REACTIONS (6)
  - Nasal congestion [Unknown]
  - Dry mouth [Unknown]
  - Taste disorder [Unknown]
  - Product physical issue [Unknown]
  - Product quality issue [Unknown]
  - Product label issue [Unknown]

NARRATIVE: CASE EVENT DATE: 20230320
